FAERS Safety Report 8853060 (Version 6)
Quarter: 2014Q2

REPORT INFORMATION
  Report Type: Spontaneous
  Country: US (occurrence: US)
  Receive Date: 20121022
  Receipt Date: 20140625
  Transmission Date: 20141212
  Serious: Yes (Disabling)
  Sender: FDA-Public Use
  Company Number: US-MERCK-1210USA008908

PATIENT
  Sex: Male
  Weight: 73.16 kg

DRUGS (4)
  1. PROPECIA [Suspect]
     Indication: ANDROGENETIC ALOPECIA
     Dosage: 1 MG, QD
     Route: 048
     Dates: start: 200305, end: 201104
  2. PROPECIA [Suspect]
     Dosage: 1 MG, QD
     Route: 048
     Dates: end: 201203
  3. FINASTERIDE [Suspect]
     Indication: ANDROGENETIC ALOPECIA
     Dosage: 1/4 OF 5 MG TABLET DAILY
     Route: 048
     Dates: start: 201104, end: 201203
  4. FINASTERIDE [Suspect]
     Dosage: 5 MG, UNK
     Route: 048
     Dates: start: 20110401, end: 20120214

REACTIONS (35)
  - Cognitive disorder [Not Recovered/Not Resolved]
  - Lethargy [Unknown]
  - Orgasm abnormal [Unknown]
  - Male genital atrophy [Unknown]
  - Amnesia [Not Recovered/Not Resolved]
  - Fatigue [Unknown]
  - Libido decreased [Unknown]
  - Semen analysis abnormal [Unknown]
  - Erectile dysfunction [Not Recovered/Not Resolved]
  - Anxiety [Not Recovered/Not Resolved]
  - Suicidal ideation [Not Recovered/Not Resolved]
  - Panic attack [Not Recovered/Not Resolved]
  - Wrong technique in drug usage process [Unknown]
  - Drug administration error [Unknown]
  - Hair transplant [Unknown]
  - Hair transplant [Unknown]
  - Fungal infection [Unknown]
  - Electroencephalogram abnormal [Unknown]
  - Sleep disorder [Unknown]
  - Cognitive disorder [Not Recovered/Not Resolved]
  - Hair transplant [Unknown]
  - Hypogonadism [Unknown]
  - Somnolence [Unknown]
  - Sexual dysfunction [Not Recovered/Not Resolved]
  - Sexual dysfunction [Unknown]
  - Loss of libido [Unknown]
  - Testicular pain [Not Recovered/Not Resolved]
  - Depression [Not Recovered/Not Resolved]
  - Stress [Not Recovered/Not Resolved]
  - Paranoia [Not Recovered/Not Resolved]
  - Thyroid neoplasm [Unknown]
  - Rhinoplasty [Unknown]
  - Rhinoplasty [Unknown]
  - Costochondritis [Not Recovered/Not Resolved]
  - Poor quality sleep [Unknown]
